FAERS Safety Report 13453042 (Version 1)
Quarter: 2017Q2

REPORT INFORMATION
  Report Type: Spontaneous
  Country: JP (occurrence: JP)
  Receive Date: 20170418
  Receipt Date: 20170418
  Transmission Date: 20170830
  Serious: Yes (Other)
  Sender: FDA-Public Use
  Company Number: JP-PFIZER INC-2017161627

PATIENT

DRUGS (1)
  1. VFEND [Suspect]
     Active Substance: VORICONAZOLE
     Dosage: UNK

REACTIONS (4)
  - Cytokine storm [Unknown]
  - Arthralgia [Unknown]
  - Visual impairment [Unknown]
  - Chondrocalcinosis pyrophosphate [Unknown]
